FAERS Safety Report 5267006-4 (Version None)
Quarter: 2007Q1

REPORT INFORMATION
  Report Type: 
  Country: None (occurrence: None)
  Receive Date: 20070316
  Receipt Date: 20070306
  Transmission Date: 20070707
  Serious: Yes (Other)
  Sender: FDA-Public Use
  Company Number: GB-BAYER-200710289BNE

PATIENT
  Age: 63 Year
  Sex: Female
  Weight: 59 kg

DRUGS (6)
  1. CIPROFLOXACIN [Suspect]
     Indication: ARTHROPOD BITE
     Route: 048
     Dates: start: 20070130, end: 20070202
  2. AMLODIPINE [Concomitant]
     Route: 048
  3. ATENOLOL [Concomitant]
     Indication: HYPERTENSION
     Route: 048
  4. ATORVASTATIN CALCIUM [Concomitant]
     Route: 048
     Dates: start: 19930101
  5. CHOLESTYRAMINE [Concomitant]
     Indication: DIARRHOEA
     Dates: start: 20061101
  6. LANSOPRAZOLE [Concomitant]
     Indication: ULCER
     Route: 048
     Dates: start: 20060101

REACTIONS (1)
  - SKIN EXFOLIATION [None]
